FAERS Safety Report 13080573 (Version 1)
Quarter: 2017Q1

REPORT INFORMATION
  Report Type: Spontaneous
  Country: US (occurrence: US)
  Receive Date: 20170103
  Receipt Date: 20170103
  Transmission Date: 20170428
  Serious: No
  Sender: FDA-Public Use
  Company Number: US-009507513-1612USA004607

PATIENT
  Age: 16 Year
  Sex: Male

DRUGS (2)
  1. ZOLEDRONIC ACID [Suspect]
     Active Substance: ZOLEDRONIC ACID
     Indication: PARAGANGLION NEOPLASM
     Dosage: 4 MG/KG /DOSE MONTHLY X NINE DOSES
     Route: 042
  2. TEMODAR [Suspect]
     Active Substance: TEMOZOLOMIDE
     Indication: PARAGANGLION NEOPLASM
     Dosage: 200 MG/M2 /DOSE DAILY X 5 DAYS EVERY 21 -28 DAYS FOR EIGHTS CYCLES
     Route: 048

REACTIONS (1)
  - Therapy non-responder [Unknown]
